FAERS Safety Report 12227140 (Version 1)
Quarter: 2016Q1

REPORT INFORMATION
  Report Type: Spontaneous
  Country: US (occurrence: US)
  Receive Date: 20160331
  Receipt Date: 20160331
  Transmission Date: 20160526
  Serious: No
  Sender: FDA-Public Use
  Company Number: US-ACTELION PHARMACEUTICALS US, INC.-A-US2015-111292

PATIENT
  Age: 33 Year
  Sex: Female

DRUGS (5)
  1. TYVASO [Concomitant]
     Active Substance: TREPROSTINIL
  2. COUMADIN [Concomitant]
     Active Substance: WARFARIN SODIUM
  3. OPSUMIT [Suspect]
     Active Substance: MACITENTAN
     Indication: PULMONARY ARTERIAL HYPERTENSION
     Dosage: 10 MG, QD
     Route: 048
     Dates: start: 20140717
  4. REMODULIN [Suspect]
     Active Substance: TREPROSTINIL
     Indication: PRODUCT USED FOR UNKNOWN INDICATION
     Dosage: UNK
     Route: 065
     Dates: start: 2014
  5. ADCIRCA [Concomitant]
     Active Substance: TADALAFIL

REACTIONS (13)
  - Infusion site erythema [Unknown]
  - Infusion site warmth [Unknown]
  - Headache [Unknown]
  - Incorrect dose administered [Unknown]
  - Dysstasia [Unknown]
  - Nausea [Unknown]
  - Vomiting [Unknown]
  - Infusion site induration [Unknown]
  - Infusion site pain [Unknown]
  - Pyrexia [Unknown]
  - Chills [Unknown]
  - Erythema [Unknown]
  - Abdominal distension [Unknown]

NARRATIVE: CASE EVENT DATE: 20150219
